FAERS Safety Report 7818035-5 (Version None)
Quarter: 2011Q4

REPORT INFORMATION
  Report Type: 
  Country: None (occurrence: None)
  Receive Date: 20111017
  Receipt Date: 20111010
  Transmission Date: 20120403
  Serious: Yes (Hospitalization)
  Sender: FDA-Public Use
  Company Number: US-BAYER-2011-097242

PATIENT
  Age: 42 Year
  Sex: Female

DRUGS (3)
  1. BETASERON [Suspect]
     Indication: MULTIPLE SCLEROSIS
     Dosage: UNK
     Dates: start: 20050526, end: 20060911
  2. BETASERON [Suspect]
     Dosage: UNK
     Dates: start: 20060924, end: 20090108
  3. BETASERON [Suspect]
     Dosage: UNK
     Dates: start: 20090308

REACTIONS (1)
  - MULTIPLE SCLEROSIS [None]
